FAERS Safety Report 5582942-7 (Version None)
Quarter: 2007Q4

REPORT INFORMATION
  Report Type: 
  Country: None (occurrence: None)
  Receive Date: 20071231
  Receipt Date: 20071224
  Transmission Date: 20080405
  Serious: Yes (Death, Other)
  Sender: FDA-Public Use
  Company Number: 056-C5013-07121305

PATIENT
  Age: 53 Year
  Sex: Female

DRUGS (1)
  1. CC-5013 (LENALIDOMIDE) (CAPSULES) [Suspect]
     Indication: 5Q-SYNDROME
     Dosage: ORAL
     Route: 048

REACTIONS (1)
  - ACUTE MYELOID LEUKAEMIA [None]
